FAERS Safety Report 10238062 (Version 1)
Quarter: 2014Q2

REPORT INFORMATION
  Report Type: Spontaneous
  Country: US (occurrence: None)
  Receive Date: 20140613
  Receipt Date: 20140613
  Transmission Date: 20141212
  Serious: Yes (Hospitalization)
  Sender: FDA-Public Use
  Company Number: None

PATIENT
  Age: 59 Year
  Sex: Female
  Weight: 73 kg

DRUGS (11)
  1. PANHEMATIN [Suspect]
     Indication: PORPHYRIA ACUTE
     Dates: start: 20140605, end: 20140611
  2. CEFPODOXIME [Concomitant]
  3. PHENAZOPYRIDINE [Concomitant]
  4. DILTIAZEM [Concomitant]
  5. ESOMEPRAZOLE [Concomitant]
  6. FENTANYL [Concomitant]
  7. FERROUS SULFATE [Concomitant]
  8. FLUTICASONE [Concomitant]
  9. ADVAIR [Concomitant]
  10. FOLIC ACID [Concomitant]
  11. GABAPENTIN [Concomitant]

REACTIONS (6)
  - Convulsion [None]
  - Retroperitoneal haemorrhage [None]
  - Coagulopathy [None]
  - Renal failure [None]
  - Obstruction [None]
  - Haematoma [None]
